FAERS Safety Report 9512026 (Version 1)
Quarter: 2013Q1

REPORT INFORMATION
  Report Type: Spontaneous
  Country: US (occurrence: None)
  Receive Date: 20130305
  Receipt Date: 20130305
  Transmission Date: 20140127
  Serious: Yes (Other)
  Sender: FDA-Public Use
  Company Number: 163-21880-12102664

PATIENT
  Age: 73 Year
  Sex: Male
  Weight: 80.42 kg

DRUGS (3)
  1. REVLIMID [Suspect]
     Indication: PLASMA CELL MYELOMA
     Dosage: 10 MG, 21 IN 21 D, PO
     Route: 048
     Dates: start: 20120821, end: 20120911
  2. DEXAMETHASONE (DEXAMETHASONE) (4 MILLIGRAM, TABLETS) [Concomitant]
  3. ASPIRIN (ACETYLSALICYLIC ACID) (81 MILLIGRAM, TABLETS) [Concomitant]

REACTIONS (1)
  - Bone marrow failure [None]
